FAERS Safety Report 10292732 (Version 2)
Quarter: 2014Q3

REPORT INFORMATION
  Report Type: Spontaneous
  Country: US (occurrence: US)
  Receive Date: 20140710
  Receipt Date: 20140710
  Transmission Date: 20150326
  Serious: No
  Sender: FDA-Public Use
  Company Number: US-PURDUE-USA-2013-0108808

PATIENT
  Age: 52 Year
  Sex: Male

DRUGS (2)
  1. BUTRANS [Suspect]
     Active Substance: BUPRENORPHINE
     Indication: PAIN
     Dosage: 20 MCG/HR, WEEKLY
     Route: 062
     Dates: start: 201309
  2. BUTRANS [Suspect]
     Active Substance: BUPRENORPHINE
     Dosage: 10 MCG, UNK
     Route: 062
     Dates: start: 201306, end: 201309

REACTIONS (5)
  - Application site erythema [Unknown]
  - Inadequate analgesia [Unknown]
  - Inappropriate schedule of drug administration [Unknown]
  - Device leakage [Unknown]
  - Extra dose administered [Unknown]
